FAERS Safety Report 4380824-X (Version None)
Quarter: 2004Q2

REPORT INFORMATION
  Report Type: 
  Country: None (occurrence: None)
  Receive Date: 20040616
  Receipt Date: 20040607
  Transmission Date: 20050107
  Serious: Yes (Life-Threatening)
  Sender: FDA-Public Use
  Company Number: 237479

PATIENT

DRUGS (2)
  1. ACTRAPID PENFIL HM (GE) 3 ML(ACTRAPID PENFILL HM(GE) 3 ML) [Suspect]
     Indication: DIABETES MELLITUS INSULIN-DEPENDENT
     Dosage: 46 LU, QD, INTRAUTERINE
     Route: 015
     Dates: start: 20031002
  2. PROTAPHANE PENFIL (INSULIN HUMAN) SUSPENSION FOR INJECTION, 1000 IUMML [Concomitant]

REACTIONS (3)
  - CAESAREAN SECTION [None]
  - DRUG EXPOSURE DURING PREGNANCY [None]
  - HYPOGLYCAEMIA NEONATAL [None]
